FAERS Safety Report 20713268 (Version 1)
Quarter: 2022Q2

REPORT INFORMATION
  Report Type: Spontaneous
  Country: US (occurrence: US)
  Receive Date: 20220415
  Receipt Date: 20220415
  Transmission Date: 20220721
  Serious: Yes (Other)
  Sender: FDA-Public Use
  Company Number: US-MYLANLABS-2022M1027038

PATIENT
  Sex: Female

DRUGS (5)
  1. WARFARIN [Suspect]
     Active Substance: WARFARIN
     Indication: Pulmonary embolism
     Dosage: UNK
     Route: 065
     Dates: start: 201003, end: 2011
  2. WARFARIN [Suspect]
     Active Substance: WARFARIN
     Dosage: UNK
     Route: 065
     Dates: end: 201808
  3. PREDNISONE [Concomitant]
     Active Substance: PREDNISONE
     Indication: Bronchitis
     Dosage: UNK
     Route: 065
     Dates: start: 2012
  4. RALTEGRAVIR [Concomitant]
     Active Substance: RALTEGRAVIR
     Indication: HIV infection
     Dosage: 400 MILLIGRAM, BID
     Route: 065
     Dates: start: 201302
  5. EMTRICITABINE\TENOFOVIR DISOPROXIL FUMARATE [Concomitant]
     Active Substance: EMTRICITABINE\TENOFOVIR DISOPROXIL FUMARATE
     Indication: HIV infection
     Dosage: UNK
     Route: 065
     Dates: start: 201302

REACTIONS (1)
  - Acquired protein S deficiency [Recovered/Resolved]
